FAERS Safety Report 4662319-9 (Version None)
Quarter: 2005Q2

REPORT INFORMATION
  Report Type: 
  Country: None (occurrence: None)
  Receive Date: 20050512
  Receipt Date: 20050425
  Transmission Date: 20051028
  Serious: Yes (Hospitalization, Other)
  Sender: FDA-Public Use
  Company Number: USA050392380

PATIENT
  Age: 67 Year
  Sex: Female

DRUGS (3)
  1. ALIMTA [Suspect]
     Indication: NON-SMALL CELL LUNG CANCER METASTATIC
     Dosage: 700 MG
     Dates: start: 20050101
  2. VITAMIN B-12 [Concomitant]
  3. FOLIC ACID [Concomitant]

REACTIONS (5)
  - BLOOD FIBRINOGEN DECREASED [None]
  - DEEP VEIN THROMBOSIS [None]
  - HAEMOPTYSIS [None]
  - NEUTROPHIL COUNT INCREASED [None]
  - THROMBOCYTOPENIA [None]
